FAERS Safety Report 8224766 (Version 4)
Quarter: 2013Q3

REPORT INFORMATION
  Report Type: Report from Study
  Country: US (occurrence: US)
  Receive Date: 20100629
  Receipt Date: 20130919
  Transmission Date: 20140515
  Serious: Yes (Hospitalization)
  Sender: FDA-Public Use
  Company Number: US-ACTELION-A-NJ2010-37389

PATIENT
  Age: 59 Year
  Sex: Female

DRUGS (4)
  1. TRACLEER [Suspect]
     Indication: PULMONARY ARTERIAL HYPERTENSION
     Dosage: UNK
     Route: 048
     Dates: start: 20100309, end: 2011
  2. TADALAFIL [Concomitant]
  3. REVATIO [Concomitant]
  4. COUMADIN [Concomitant]

REACTIONS (10)
  - Respiratory arrest [Unknown]
  - Loss of consciousness [Unknown]
  - Cardioversion [Unknown]
  - Blood potassium increased [Unknown]
  - Dialysis [Unknown]
  - Myocardial infarction [Unknown]
  - Abdominal infection [Unknown]
  - Laceration [Unknown]
  - Haemorrhage [Recovered/Resolved]
  - Fungal infection [Recovered/Resolved]
